FAERS Safety Report 20880471 (Version 1)
Quarter: 2022Q2

REPORT INFORMATION
  Report Type: Spontaneous
  Country: US (occurrence: US)
  Receive Date: 20220526
  Receipt Date: 20220526
  Transmission Date: 20220721
  Serious: No
  Sender: FDA-Public Use
  Company Number: US-RADIUS HEALTH INC.-2022US001019

PATIENT
  Age: 84 Year
  Sex: Female

DRUGS (1)
  1. TYMLOS [Suspect]
     Active Substance: ABALOPARATIDE
     Indication: Osteoporosis
     Dosage: 80 MCG, QD
     Route: 058
     Dates: start: 20220209

REACTIONS (8)
  - Injection site vesicles [Recovering/Resolving]
  - Injection site extravasation [Unknown]
  - Injection site erythema [Recovering/Resolving]
  - Heart rate increased [Not Recovered/Not Resolved]
  - Insomnia [Not Recovered/Not Resolved]
  - Injection site oedema [Unknown]
  - Injection site swelling [Unknown]
  - Product quality issue [Unknown]

NARRATIVE: CASE EVENT DATE: 20220306
